FAERS Safety Report 12938624 (Version 4)
Quarter: 2022Q3

REPORT INFORMATION
  Report Type: Spontaneous
  Country: US (occurrence: US)
  Receive Date: 20161114
  Receipt Date: 20220824
  Transmission Date: 20221027
  Serious: Yes (Death, Other)
  Sender: FDA-Public Use
  Company Number: US-ACADIA PHARMACEUTICALS INC.-ACA-2016-000469

PATIENT
  Sex: Female
  Weight: 91 kg

DRUGS (15)
  1. NUPLAZID [Suspect]
     Active Substance: PIMAVANSERIN TARTRATE
     Indication: Parkinson^s disease
     Dosage: 34 MG, QD
     Route: 048
  2. NUPLAZID [Suspect]
     Active Substance: PIMAVANSERIN TARTRATE
     Indication: Parkinson^s disease psychosis
     Dosage: 34 MG, QD
     Route: 065
     Dates: start: 20220328, end: 20220728
  3. NUPLAZID [Suspect]
     Active Substance: PIMAVANSERIN TARTRATE
     Indication: Parkinson^s disease psychosis
     Dosage: 34 MG, QD
     Route: 048
     Dates: start: 201607
  4. NUPLAZID [Suspect]
     Active Substance: PIMAVANSERIN TARTRATE
     Dosage: 34 MG, QD
     Route: 048
     Dates: start: 20160912
  5. CARVEDILOL [Concomitant]
     Active Substance: CARVEDILOL
  6. FLUOXETINE [Concomitant]
     Active Substance: FLUOXETINE HYDROCHLORIDE
  7. SIMVASTATIN [Concomitant]
     Active Substance: SIMVASTATIN
  8. SINEMET [Concomitant]
     Active Substance: CARBIDOPA\LEVODOPA
     Dosage: 25/250MG 2 TABLETS TID SINCE ATLEAST 10 YEARS
  9. ASPIRIN [Concomitant]
     Active Substance: ASPIRIN
  10. HYDRALAZINE [Concomitant]
     Active Substance: HYDRALAZINE HYDROCHLORIDE
     Dosage: 25 MILLIGRAM, TID
     Dates: start: 2021
  11. CANDESARTAN [Concomitant]
     Active Substance: CANDESARTAN
     Dosage: 4 MILLIGRAM, QD
     Dates: start: 2021
  12. MOTEGRITY [Concomitant]
     Active Substance: PRUCALOPRIDE SUCCINATE
     Dosage: 1 MILLIGRAM, QD
     Dates: start: 2021
  13. ALBUTEROL [Concomitant]
     Active Substance: ALBUTEROL
     Dosage: 0.083% NEBULISER
     Dates: start: 2018
  14. LORAZEPAM [Concomitant]
     Active Substance: LORAZEPAM
     Dosage: 0.5 MG TID PRN
     Dates: start: 2022
  15. MOXIFLOXACIN [Concomitant]
     Active Substance: MOXIFLOXACIN
     Dosage: 40 MILLIGRAM, QD
     Dates: start: 2022

REACTIONS (6)
  - Pneumonia aspiration [Recovered/Resolved]
  - Parkinson^s disease [Recovered/Resolved]
  - Dysphagia [Recovered/Resolved]
  - Condition aggravated [Unknown]
  - Dyspepsia [Recovered/Resolved]
  - Agitation [Not Recovered/Not Resolved]

NARRATIVE: CASE EVENT DATE: 20160101
